FAERS Safety Report 26122096 (Version 2)
Quarter: 2025Q4

REPORT INFORMATION
  Report Type: Spontaneous
  Country: CN (occurrence: CN)
  Receive Date: 20251204
  Receipt Date: 20251210
  Transmission Date: 20260118
  Serious: Yes (Other)
  Sender: BAYER HEALTHCARE PHARMACEUTICALS INC.
  Company Number: CN-BAYER-2025A159132

PATIENT
  Age: 40 Year
  Sex: Male
  Weight: 60 kg

DRUGS (17)
  1. ACARBOSE [Suspect]
     Active Substance: ACARBOSE
     Indication: Type 2 diabetes mellitus
     Dosage: 50 MG, TID
     Route: 048
     Dates: start: 202402, end: 20240711
  2. INSULIN GLARGINE [Concomitant]
     Active Substance: INSULIN GLARGINE
     Indication: Type 2 diabetes mellitus
     Dosage: 14 U, QD
     Route: 058
     Dates: start: 202402
  3. MEROPENEM [Concomitant]
     Active Substance: MEROPENEM
     Indication: Anti-infective therapy
     Dosage: 1 G, TID
     Route: 041
     Dates: start: 202402
  4. AZACITIDINE [Concomitant]
     Active Substance: AZACITIDINE
     Indication: Chemotherapy
     Dosage: 100 MG, QD, DAY1 TO 10 OF FIRST CHEMOTHERAPY
     Route: 058
     Dates: start: 202402, end: 2024
  5. AZACITIDINE [Concomitant]
     Active Substance: AZACITIDINE
     Indication: Chemotherapy
     Dosage: 100 MG, QD, DAY1 TO 10 OF SECOND CHEMOTHERAPY
     Route: 058
     Dates: start: 2024, end: 2024
  6. AZACITIDINE [Concomitant]
     Active Substance: AZACITIDINE
     Indication: Chemotherapy
     Dosage: 100 MG, QD, DAY1 TO 10 OF THIRD CHEMOTHERAPY
     Route: 058
     Dates: start: 2024, end: 2024
  7. AZACITIDINE [Concomitant]
     Active Substance: AZACITIDINE
     Indication: Chemotherapy
     Dosage: 100 MG, QD, DAY1 TO 10 OF FOURTH CHEMOTHERAPY
     Route: 058
     Dates: start: 2024, end: 2024
  8. CYTARABINE [Concomitant]
     Active Substance: CYTARABINE
     Indication: Chemotherapy
     Dosage: 0.02 G, BID, DAY2 TO 15 OF FIRST CHEMOTHERAPY
     Route: 058
     Dates: start: 202402, end: 2024
  9. CYTARABINE [Concomitant]
     Active Substance: CYTARABINE
     Indication: Chemotherapy
     Dosage: 0.02 G, BID, DAY2 TO 15 OF SECOND CHEMOTHERAPY
     Route: 058
     Dates: start: 2024, end: 2024
  10. CYTARABINE [Concomitant]
     Active Substance: CYTARABINE
     Indication: Chemotherapy
     Dosage: 0.02 G, BID, DAY2 TO 15 OF THIRD CHEMOTHERAPY
     Route: 058
     Dates: start: 2024, end: 2024
  11. CYTARABINE [Concomitant]
     Active Substance: CYTARABINE
     Indication: Chemotherapy
     Dosage: 0.02 G, BID, DAY2 TO 15 OF FOURTH CHEMOTHERAPY
     Route: 058
     Dates: start: 2024, end: 2024
  12. Aclarubicin hydrochlorid [Concomitant]
     Indication: Chemotherapy
     Dosage: 20 MG, QD, DAY2 TO 8 OF FIRST CHEMOTHERAPY
     Route: 041
     Dates: start: 202402, end: 2024
  13. Aclarubicin hydrochlorid [Concomitant]
     Indication: Chemotherapy
     Dosage: 20 MG, QD, DAY2 TO 8 OF SECOND CHEMOTHERAPY
     Route: 041
     Dates: start: 2024, end: 2024
  14. Aclarubicin hydrochlorid [Concomitant]
     Indication: Chemotherapy
     Dosage: 20 MG, QD, DAY2 TO 8 OF THIRD CHEMOTHERAPY
     Route: 041
     Dates: start: 2024, end: 2024
  15. Aclarubicin hydrochlorid [Concomitant]
     Indication: Chemotherapy
     Dosage: 20 MG, QD, DAY2 TO 8 OF FOURTH CHEMOTHERAPY
     Route: 041
     Dates: start: 2024, end: 2024
  16. CEFOPERAZONE SODIUM\SULBACTAM SODIUM [Concomitant]
     Active Substance: CEFOPERAZONE SODIUM\SULBACTAM SODIUM
     Indication: Anti-infective therapy
     Dosage: 3 G, TID
     Route: 041
     Dates: start: 2024
  17. CEFOPERAZONE SODIUM\SULBACTAM SODIUM [Concomitant]
     Active Substance: CEFOPERAZONE SODIUM\SULBACTAM SODIUM
     Indication: Pyrexia

REACTIONS (1)
  - Drug-induced liver injury [Recovered/Resolved]

NARRATIVE: CASE EVENT DATE: 20240711
